FAERS Safety Report 20187383 (Version 1)
Quarter: 2021Q4

REPORT INFORMATION
  Report Type: Spontaneous
  Country: IT (occurrence: IT)
  Receive Date: 20211215
  Receipt Date: 20211215
  Transmission Date: 20220303
  Serious: Yes (Death, Other)
  Sender: FDA-Public Use
  Company Number: None

PATIENT
  Age: 51 Year
  Sex: Male
  Weight: 70 kg

DRUGS (2)
  1. ZOLPIDEM TARTRATE [Suspect]
     Active Substance: ZOLPIDEM TARTRATE
     Indication: Insomnia
     Dosage: UNK
     Route: 048
     Dates: start: 20210909, end: 20211118
  2. ASERA 3 [Concomitant]

REACTIONS (2)
  - Completed suicide [Fatal]
  - Drug abuse [Unknown]

NARRATIVE: CASE EVENT DATE: 20211118
